FAERS Safety Report 5710017-2 (Version None)
Quarter: 2008Q2

REPORT INFORMATION
  Report Type: 
  Country: None (occurrence: None)
  Receive Date: 20080418
  Receipt Date: 20080414
  Transmission Date: 20081010
  Serious: Yes (Death, Hospitalization, Other)
  Sender: FDA-Public Use
  Company Number: US-PFIZER INC-2006008898

PATIENT
  Sex: Male
  Weight: 90.7 kg

DRUGS (4)
  1. CELEBREX [Suspect]
     Indication: ARTHRITIS
     Dates: start: 20000823, end: 20030101
  2. CELEBREX [Suspect]
     Indication: PAIN
     Route: 065
     Dates: start: 20000801, end: 20030101
  3. BEXTRA [Suspect]
     Indication: ARTHRITIS
  4. BEXTRA [Suspect]
     Indication: PAIN

REACTIONS (1)
  - MYOCARDIAL INFARCTION [None]
